FAERS Safety Report 7055382-1 (Version None)
Quarter: 2010Q4

REPORT INFORMATION
  Report Type: 
  Country: None (occurrence: None)
  Receive Date: 20101021
  Receipt Date: 20101013
  Transmission Date: 20110411
  Serious: Yes (Hospitalization, Other)
  Sender: FDA-Public Use
  Company Number: FR-PURDUE-GBR-2010-0007203

PATIENT
  Sex: Female

DRUGS (11)
  1. OXYCONTIN [Suspect]
     Indication: PRODUCT USED FOR UNKNOWN INDICATION
     Dosage: 40 MG, DAILY
     Route: 048
     Dates: start: 20100816, end: 20100821
  2. AMITRIPTYLINE HCL [Suspect]
     Indication: PRODUCT USED FOR UNKNOWN INDICATION
     Dosage: 15 DROP, DAILY
     Route: 048
     Dates: start: 20100809, end: 20100821
  3. DICLOFENAC SODIUM [Concomitant]
     Dosage: UNK
     Route: 048
     Dates: end: 20100821
  4. INDAPAMIDE [Concomitant]
     Dosage: 1.5 MG, DAILY
     Route: 048
     Dates: end: 20100821
  5. PREVISCAN                          /00261401/ [Concomitant]
     Dosage: 20 MG, UNK
     Route: 048
  6. APROVEL [Concomitant]
     Dosage: 300 MG, DAILY
     Route: 048
  7. CORDARONE [Concomitant]
     Dosage: 200 MG, DAILY
     Route: 048
  8. TAHOR [Concomitant]
     Dosage: 80 MG, DAILY
     Route: 048
  9. ZOPICLONE [Concomitant]
     Dosage: 7.5 MG, DAILY
     Route: 048
     Dates: start: 20100821
  10. ZOPICLONE [Concomitant]
     Dosage: 10 MG, DAILY
     Route: 048
  11. BISOPROLOL [Concomitant]
     Dosage: 10 MG, DAILY
     Route: 048

REACTIONS (7)
  - CONDITION AGGRAVATED [None]
  - CONFUSIONAL STATE [None]
  - OXYGEN SATURATION [None]
  - PYREXIA [None]
  - RENAL FAILURE ACUTE [None]
  - RESPIRATORY RATE INCREASED [None]
  - WALKING DISABILITY [None]
